FAERS Safety Report 5401179-5 (Version None)
Quarter: 2007Q3

REPORT INFORMATION
  Report Type: 
  Country: None (occurrence: None)
  Receive Date: 20070731
  Receipt Date: 20070725
  Transmission Date: 20080115
  Serious: Yes (Hospitalization, Disabling)
  Sender: FDA-Public Use
  Company Number: PHNU2007DE02643

PATIENT
  Age: 58 Year
  Sex: Male

DRUGS (1)
  1. ZOMETA [Suspect]
     Indication: METASTASIS
     Route: 065
     Dates: start: 20050501

REACTIONS (11)
  - BONE DISORDER [None]
  - IMPAIRED HEALING [None]
  - JAW DISORDER [None]
  - LYMPH NODE PAIN [None]
  - LYMPHADENOPATHY [None]
  - ORAL SURGERY [None]
  - OSTEONECROSIS [None]
  - PERIODONTITIS [None]
  - TOOTH EXTRACTION [None]
  - WOUND CLOSURE [None]
  - X-RAY DENTAL [None]
